FAERS Safety Report 10878932 (Version 1)
Quarter: 2015Q1

REPORT INFORMATION
  Report Type: Spontaneous
  Country: US (occurrence: US)
  Receive Date: 20150302
  Receipt Date: 20150302
  Transmission Date: 20150721
  Serious: No
  Sender: FDA-Public Use
  Company Number: US-009507513-1502USA009858

PATIENT
  Sex: Female

DRUGS (3)
  1. STROMECTOL [Suspect]
     Active Substance: IVERMECTIN
     Indication: ACARODERMATITIS
     Dosage: 3 MG, UNK
     Route: 048
     Dates: start: 201407
  2. IVERMECTIN. [Suspect]
     Active Substance: IVERMECTIN
     Indication: ACARODERMATITIS
  3. STROMECTOL [Suspect]
     Active Substance: IVERMECTIN
     Dosage: 2ND DOSE
     Route: 048

REACTIONS (2)
  - Headache [Unknown]
  - Drug ineffective [Unknown]
